FAERS Safety Report 4321210-8 (Version None)
Quarter: 2004Q1

REPORT INFORMATION
  Report Type: 
  Country: None (occurrence: None)
  Receive Date: 20040322
  Receipt Date: 20031212
  Transmission Date: 20041129
  Serious: No
  Sender: FDA-Public Use
  Company Number: A-US2003-04049

PATIENT
  Sex: Female

DRUGS (8)
  1. TRACLEER [Suspect]
     Dosage: 62.5 MG, BID, ORAL;125 MG
     Route: 048
     Dates: start: 20030501
  2. TRACLEER [Suspect]
     Dosage: 62.5 MG, BID, ORAL;125 MG
     Route: 048
     Dates: start: 20030601
  3. COUMADIN [Concomitant]
  4. POTASSIUM (POTASSIUM) [Concomitant]
  5. ZOCOR [Concomitant]
  6. CELEBREX [Concomitant]
  7. ZESTRIL [Concomitant]
  8. PREMARIN [Concomitant]

REACTIONS (3)
  - ABDOMINAL TENDERNESS [None]
  - DERMATITIS [None]
  - NAUSEA [None]
